FAERS Safety Report 8585750-8 (Version None)
Quarter: 2012Q3

REPORT INFORMATION
  Report Type: 
  Country: None (occurrence: None)
  Receive Date: 20120810
  Receipt Date: 20120806
  Transmission Date: 20120928
  Serious: Yes (Death)
  Sender: FDA-Public Use
  Company Number: US-INCYTE CORPORATION-2012IN001457

PATIENT
  Sex: Male

DRUGS (4)
  1. VITAMIN D [Concomitant]
  2. CALCIUM [Concomitant]
  3. MUCINEX [Concomitant]
  4. JAKAFI [Suspect]
     Indication: MYELOFIBROSIS

REACTIONS (1)
  - DEATH [None]
